FAERS Safety Report 14420589 (Version 1)
Quarter: 2018Q1

REPORT INFORMATION
  Report Type: Spontaneous
  Country: US (occurrence: US)
  Receive Date: 20180122
  Receipt Date: 20180122
  Transmission Date: 20180509
  Serious: Yes (Other)
  Sender: FDA-Public Use
  Company Number: US-ROCHE-1957122

PATIENT
  Age: 11 Year
  Sex: Female

DRUGS (1)
  1. RITUXAN [Suspect]
     Active Substance: RITUXIMAB
     Indication: FOCAL SEGMENTAL GLOMERULOSCLEROSIS
     Dosage: ONGOING: UNKNOWN
     Route: 065

REACTIONS (4)
  - Infection [Unknown]
  - Oral infection [Unknown]
  - Tooth infection [Unknown]
  - Off label use [Unknown]
